FAERS Safety Report 8784686 (Version 1)
Quarter: 2012Q4

REPORT INFORMATION
  Report Type: Spontaneous
  Country: US (occurrence: None)
  Receive Date: 20120906
  Receipt Date: 20120906
  Transmission Date: 20130627
  Serious: Yes (Other)
  Sender: FDA-Public Use
  Company Number: None

PATIENT
  Age: 61 Year
  Sex: Female
  Weight: 113.85 kg

DRUGS (1)
  1. LEXAPRO [Suspect]
     Dates: start: 201203, end: 201207

REACTIONS (5)
  - Anger [None]
  - Anger [None]
  - Sleep terror [None]
  - Sleep disorder [None]
  - Product substitution issue [None]
